FAERS Safety Report 20417228 (Version 1)
Quarter: 2022Q1

REPORT INFORMATION
  Report Type: Spontaneous
  Country: IN (occurrence: IN)
  Receive Date: 20220202
  Receipt Date: 20220202
  Transmission Date: 20220424
  Serious: Yes (Other)
  Sender: FDA-Public Use
  Company Number: IN-GLENMARK PHARMACEUTICALS-2022GMK069956

PATIENT
  Age: 47 Year
  Sex: Male

DRUGS (3)
  1. APREMILAST [Suspect]
     Active Substance: APREMILAST
     Indication: Psoriasis
     Dosage: 10 MILLIGRAM, OD
     Route: 048
  2. APREMILAST [Suspect]
     Active Substance: APREMILAST
     Dosage: 30 MILLIGRAM, BID
     Route: 048
  3. CLOBETASOL [CLOBETASOL PROPIONATE] [Concomitant]
     Indication: Psoriasis
     Dosage: UNK
     Route: 065

REACTIONS (1)
  - Tinnitus [Not Recovered/Not Resolved]
